FAERS Safety Report 10267981 (Version 4)
Quarter: 2015Q2

REPORT INFORMATION
  Report Type: Spontaneous
  Country: JP (occurrence: JP)
  Receive Date: 20140630
  Receipt Date: 20150429
  Transmission Date: 20150821
  Serious: Yes (Death, Other)
  Sender: FDA-Public Use
  Company Number: JP-PFIZER INC-2014179084

PATIENT
  Age: 72 Year
  Sex: Male
  Weight: 56 kg

DRUGS (15)
  1. RISPERDAL [Concomitant]
     Active Substance: RISPERIDONE
     Dosage: 0.5 ML, 1X/DAY
     Route: 048
     Dates: start: 20130604, end: 20130708
  2. SLONNON [Suspect]
     Active Substance: ARGATROBAN
     Dosage: 7.5MG/H X 4H (3 IN 1 WK)
     Route: 042
     Dates: start: 20130624, end: 20130708
  3. MAGMITT [Concomitant]
     Active Substance: MAGNESIUM OXIDE
     Dosage: 660 MG, 3X/DAY
     Route: 048
     Dates: start: 20130606, end: 20130708
  4. DOPS [Concomitant]
     Active Substance: DROXIDOPA
     Dosage: 200 MG, 1X/DAY
     Route: 048
     Dates: start: 20130610, end: 20130708
  5. HYDROCORTONE /00028603/ [Concomitant]
     Dosage: 50 MG, 1X/DAY
     Route: 042
     Dates: start: 20130708, end: 20130708
  6. PENLES [Concomitant]
     Active Substance: LIDOCAINE
     Dosage: 3 DF, 1X/DAY
     Route: 065
     Dates: start: 20130609, end: 20130609
  7. NEXIUM [Concomitant]
     Active Substance: ESOMEPRAZOLE MAGNESIUM
     Dosage: 20 MG, 1X/DAY
     Route: 048
     Dates: start: 20130521, end: 20130708
  8. TAKEPRON [Concomitant]
     Active Substance: LANSOPRAZOLE
     Dosage: 15 MG, 1X/DAY
     Route: 048
     Dates: start: 20130702, end: 20130708
  9. RISUMIC [Concomitant]
     Active Substance: AMEZINIUM METILSULFATE
     Dosage: 10 MG, 1X/DAY
     Route: 048
     Dates: start: 20130610, end: 20130708
  10. GLUCOSE [Concomitant]
     Active Substance: DEXTROSE
     Dosage: 50 ML, 1X/DAY
     Route: 042
     Dates: start: 20130622, end: 20130708
  11. ARGAMATE [Concomitant]
     Active Substance: POLYSTYRENE
     Dosage: 7.5 G, 3X/DAY
     Route: 048
     Dates: start: 20130529, end: 20130708
  12. HYDROCORTONE /00028603/ [Concomitant]
     Dosage: 100 MG, 1X/DAY
     Route: 042
     Dates: start: 20130614, end: 20130708
  13. SLONNON [Suspect]
     Active Substance: ARGATROBAN
     Indication: HEPARIN-INDUCED THROMBOCYTOPENIA
     Dosage: UNK
     Route: 040
     Dates: start: 20130624, end: 20130624
  14. REMITCH [Concomitant]
     Active Substance: NALFURAFINE HYDROCHLORIDE
     Dosage: 2.5 ?G, 1X/DAY
     Route: 048
     Dates: start: 20130525, end: 20130708
  15. PENLES [Concomitant]
     Active Substance: LIDOCAINE
     Dosage: 2 DF, 1X/DAY
     Route: 065

REACTIONS (1)
  - Cardiac tamponade [Fatal]

NARRATIVE: CASE EVENT DATE: 20130709
